FAERS Safety Report 5083803-2 (Version None)
Quarter: 2006Q3

REPORT INFORMATION
  Report Type: 
  Country: None (occurrence: None)
  Receive Date: 20060817
  Receipt Date: 20060817
  Transmission Date: 20061208
  Serious: Yes (Other)
  Sender: FDA-Public Use
  Company Number: None

PATIENT
  Age: 38 Year
  Sex: Female
  Weight: 69.8539 kg

DRUGS (4)
  1. EFFEXOR XR [Suspect]
     Indication: ANXIETY
     Dosage: 150 MG.  ONCE DAILY PO
     Route: 048
     Dates: start: 20060510, end: 20060810
  2. EFFEXOR XR [Suspect]
     Indication: DEPRESSION
     Dosage: 150 MG.  ONCE DAILY PO
     Route: 048
     Dates: start: 20060510, end: 20060810
  3. WELLBUTRIN XL [Concomitant]
  4. PROZAC [Concomitant]

REACTIONS (5)
  - DRUG INEFFECTIVE [None]
  - DRUG WITHDRAWAL SYNDROME [None]
  - NERVOUS SYSTEM DISORDER [None]
  - RESTLESS LEGS SYNDROME [None]
  - SENSORY DISTURBANCE [None]
